FAERS Safety Report 8447567-4 (Version None)
Quarter: 2012Q2

REPORT INFORMATION
  Report Type: 
  Country: None (occurrence: None)
  Receive Date: 20120619
  Receipt Date: 20120614
  Transmission Date: 20120825
  Serious: Yes (Hospitalization, Other)
  Sender: FDA-Public Use
  Company Number: US-PFIZER INC-2012071099

PATIENT
  Sex: Female
  Weight: 92.971 kg

DRUGS (3)
  1. ACETAMINOPHEN [Concomitant]
     Indication: PAIN
     Dosage: UNK
  2. SUTENT [Suspect]
     Indication: RENAL CANCER
     Dosage: 50 MG, 1X/DAY, 4 WEEKS ON/2 WEEKS OFF
     Route: 048
     Dates: start: 20120201, end: 20120201
  3. LOSARTAN POTASSIUM [Concomitant]
     Indication: HYPERTENSION
     Dosage: 25 MG, 1X/DAY

REACTIONS (21)
  - FATIGUE [None]
  - DECREASED APPETITE [None]
  - VULVOVAGINAL MYCOTIC INFECTION [None]
  - SWELLING FACE [None]
  - HYPERTENSION [None]
  - NAUSEA [None]
  - PLATELET COUNT DECREASED [None]
  - DYSGEUSIA [None]
  - DISEASE PROGRESSION [None]
  - ORAL PAIN [None]
  - VAGINAL INFECTION [None]
  - CONSTIPATION [None]
  - ORAL FUNGAL INFECTION [None]
  - HEADACHE [None]
  - DEPRESSION [None]
  - STOMATITIS [None]
  - RENAL CELL CARCINOMA [None]
  - ASTHENIA [None]
  - CHROMATURIA [None]
  - EPIGASTRIC DISCOMFORT [None]
  - MUCOSAL INFLAMMATION [None]
